FAERS Safety Report 8300282-X (Version None)
Quarter: 2012Q2

REPORT INFORMATION
  Report Type: 
  Country: None (occurrence: None)
  Receive Date: 20120420
  Receipt Date: 20120417
  Transmission Date: 20120825
  Serious: Yes (Other)
  Sender: FDA-Public Use
  Company Number: US-PFIZER INC-2012013967

PATIENT
  Sex: Male
  Weight: 93.4 kg

DRUGS (5)
  1. RELPAX [Suspect]
  2. ZOMIG [Suspect]
     Indication: MIGRAINE
     Dosage: UNK
  3. RELPAX [Suspect]
     Indication: MIGRAINE
     Dosage: 40 MG, 2X/DAY
     Route: 048
  4. MAXALT [Suspect]
     Indication: MIGRAINE
     Dosage: UNK
  5. IMITREX [Suspect]
     Indication: MIGRAINE
     Dosage: UNK

REACTIONS (5)
  - MULTIPLE SCLEROSIS [None]
  - HEADACHE [None]
  - CHEST PAIN [None]
  - DRUG INEFFECTIVE [None]
  - BEDRIDDEN [None]
